FAERS Safety Report 4758166-X (Version None)
Quarter: 2005Q3

REPORT INFORMATION
  Report Type: 
  Country: None (occurrence: None)
  Receive Date: 20050829
  Receipt Date: 20050817
  Transmission Date: 20060218
  Serious: Yes (Life-Threatening, Hospitalization)
  Sender: FDA-Public Use
  Company Number: 05GER0133

PATIENT
  Age: 70 Year
  Sex: Female

DRUGS (8)
  1. AGGRASTAT [Suspect]
     Dates: start: 20050613, end: 20050613
  2. ENOXAPARIN SODIUM [Concomitant]
  3. BISOPROLOL FUMARATE [Concomitant]
  4. RAMIPRIL [Concomitant]
  5. ISCOVER (CLOPIDOGREL SULFATE) [Concomitant]
  6. NEXIUM [Concomitant]
  7. ZOCOR [Concomitant]
  8. ASPIRIN 9ACETYLSALICYLIC ACID) (TABLETS) [Concomitant]

REACTIONS (1)
  - THROMBOCYTOPENIA [None]
